FAERS Safety Report 9125835 (Version 2)
Quarter: 2013Q1

REPORT INFORMATION
  Report Type: Report from Study
  Country: CA (occurrence: CA)
  Receive Date: 20130117
  Receipt Date: 20130125
  Transmission Date: 20140127
  Serious: Yes (Hospitalization, Other)
  Sender: FDA-Public Use
  Company Number: CA-ROCHE-1180429

PATIENT
  Age: 65 Year
  Sex: Male
  Weight: 79.5 kg

DRUGS (5)
  1. ACTEMRA [Suspect]
     Indication: RHEUMATOID ARTHRITIS
     Route: 042
     Dates: start: 20121017
  2. ACTEMRA [Suspect]
     Route: 042
     Dates: start: 20121120, end: 20121120
  3. CRESTOR [Concomitant]
  4. ASA (ACETYLSALICYLIC ACID) [Concomitant]
     Route: 065
  5. TYLENOL [Concomitant]

REACTIONS (3)
  - Fall [Recovering/Resolving]
  - Joint destruction [Unknown]
  - Liver function test abnormal [Recovered/Resolved]
